FAERS Safety Report 9099364 (Version 1)
Quarter: 2013Q1

REPORT INFORMATION
  Report Type: Spontaneous
  Country: AR (occurrence: AR)
  Receive Date: 20130214
  Receipt Date: 20130214
  Transmission Date: 20140127
  Serious: Yes (Death, Hospitalization)
  Sender: FDA-Public Use
  Company Number: PHHY2013AR014272

PATIENT
  Sex: Male

DRUGS (1)
  1. DIOVAN [Suspect]
     Indication: COUGH
     Dosage: 1 DF PER DAY (160 MG)
     Route: 048
     Dates: start: 200905

REACTIONS (1)
  - Pneumonia [Fatal]
